FAERS Safety Report 11977819 (Version 2)
Quarter: 2016Q1

REPORT INFORMATION
  Report Type: Spontaneous
  Country: DE (occurrence: DE)
  Receive Date: 20160129
  Receipt Date: 20160208
  Transmission Date: 20160526
  Serious: Yes (Death, Other)
  Sender: FDA-Public Use
  Company Number: DE-GILEAD-2016-0195218

PATIENT
  Age: 78 Year
  Sex: Male

DRUGS (4)
  1. AZATHIOPRIN [Concomitant]
     Active Substance: AZATHIOPRINE
     Dosage: 100 MG, UNK
     Route: 048
  2. REVATIO [Concomitant]
     Active Substance: SILDENAFIL CITRATE
     Dosage: 20 MG, UNK
     Route: 048
  3. EPLERENONE. [Concomitant]
     Active Substance: EPLERENONE
     Dosage: 25 MG, UNK
     Route: 048
  4. AMBRISENTAN [Suspect]
     Active Substance: AMBRISENTAN
     Indication: PRODUCT USED FOR UNKNOWN INDICATION
     Dosage: 10 MG, UNK
     Route: 065

REACTIONS (1)
  - Death [Fatal]
